FAERS Safety Report 8262637-1 (Version None)
Quarter: 2012Q1

REPORT INFORMATION
  Report Type: 
  Country: None (occurrence: None)
  Receive Date: 20120327
  Receipt Date: 20080529
  Transmission Date: 20120608
  Serious: Yes (Other)
  Sender: FDA-Public Use
  Company Number: PHEH2008US04982

PATIENT
  Sex: Female

DRUGS (1)
  1. GLEEVEC [Suspect]
     Dosage: ORAL
     Route: 048

REACTIONS (6)
  - OEDEMA PERIPHERAL [None]
  - DYSPHONIA [None]
  - WEIGHT INCREASED [None]
  - PYREXIA [None]
  - COUGH [None]
  - FATIGUE [None]
